FAERS Safety Report 8783226 (Version 1)
Quarter: 2012Q4

REPORT INFORMATION
  Report Type: 
  Country: US (occurrence: US)
  Receive Date: 20120913
  Receipt Date: 20120913
  Transmission Date: 20130627
  Serious: No
  Sender: FDA-Public Use
  Company Number: US-BAYER-2012-095472

PATIENT
  Age: 60 Year
  Sex: Female

DRUGS (2)
  1. GADAVIST [Suspect]
     Indication: NUCLEAR MAGNETIC RESONANCE IMAGING
     Dosage: 9 ml, ONCE
     Route: 055
     Dates: start: 20120912
  2. BENADRYL [Concomitant]
     Indication: URTICARIA
     Dosage: 50 mg, ONCE
     Route: 048

REACTIONS (1)
  - Urticaria [None]
